FAERS Safety Report 6960466-X (Version None)
Quarter: 2010Q3

REPORT INFORMATION
  Report Type: 
  Country: None (occurrence: None)
  Receive Date: 20100901
  Receipt Date: 20100818
  Transmission Date: 20110219
  Serious: Yes (Other)
  Sender: FDA-Public Use
  Company Number: KR-JNJFOC-20100806213

PATIENT
  Age: 33 Year
  Sex: Male

DRUGS (7)
  1. TOPAMAX [Suspect]
     Indication: BIPOLAR DISORDER
     Route: 048
  2. TOPAMAX [Suspect]
     Indication: DEPRESSION
     Route: 048
  3. DEPAKOTE [Suspect]
     Indication: BIPOLAR DISORDER
     Route: 048
  4. DEPAKOTE [Suspect]
     Indication: DEPRESSION
     Route: 048
  5. LAMICTAL [Suspect]
     Indication: BIPOLAR DISORDER
     Route: 048
  6. LAMICTAL [Suspect]
     Indication: DEPRESSION
     Route: 048
  7. VIAGRA [Concomitant]
     Indication: ERECTILE DYSFUNCTION
     Route: 048

REACTIONS (5)
  - ASTHENIA [None]
  - COGNITIVE DISORDER [None]
  - ERECTILE DYSFUNCTION [None]
  - FEELING ABNORMAL [None]
  - INCOHERENT [None]
